FAERS Safety Report 4898346-6 (Version None)
Quarter: 2006Q1

REPORT INFORMATION
  Report Type: 
  Country: None (occurrence: None)
  Receive Date: 20060127
  Receipt Date: 20060118
  Transmission Date: 20060701
  Serious: Yes (Death)
  Sender: FDA-Public Use
  Company Number: 163-20785-05120498

PATIENT
  Age: 83 Year
  Sex: Male

DRUGS (10)
  1. THALOMID [Suspect]
     Indication: MULTIPLE MYELOMA
     Dosage: 50 MG, DAILY, ORAL
     Route: 048
     Dates: start: 20051219, end: 20051223
  2. DECADRON [Concomitant]
  3. COUMADIN [Concomitant]
  4. DIFLUCAN (FLUCONAZOLE) [Concomitant]
  5. ACYCLOVIR [Concomitant]
  6. CARDIZEM CD [Concomitant]
  7. PREVACID [Concomitant]
  8. CATAPRES-TTS (CLONIDINE) (POULTICE OR PATCH) [Concomitant]
  9. AUGMENTIN '125' [Concomitant]
  10. ARANESP [Concomitant]

REACTIONS (1)
  - RENAL FAILURE CHRONIC [None]
